FAERS Safety Report 18599172 (Version 1)
Quarter: 2020Q4

REPORT INFORMATION
  Report Type: Spontaneous
  Country: US (occurrence: US)
  Receive Date: 20201209
  Receipt Date: 20201209
  Transmission Date: 20210114
  Serious: Yes (Death)
  Sender: FDA-Public Use
  Company Number: None

PATIENT
  Age: 57 Year
  Sex: Male

DRUGS (19)
  1. FOLIC ACID. [Concomitant]
     Active Substance: FOLIC ACID
  2. OLANZAPINE. [Concomitant]
     Active Substance: OLANZAPINE
  3. POT CL MICRO ER [Concomitant]
  4. BOSULIF [Suspect]
     Active Substance: BOSUTINIB MONOHYDRATE
     Indication: ACUTE LYMPHOCYTIC LEUKAEMIA
     Route: 048
     Dates: start: 20191101, end: 202012
  5. PANTOPRAZOLE [Concomitant]
     Active Substance: PANTOPRAZOLE
  6. POSACONAZOLE [Concomitant]
     Active Substance: POSACONAZOLE
  7. BIOTIN [Concomitant]
     Active Substance: BIOTIN
  8. NYSTATIN. [Concomitant]
     Active Substance: NYSTATIN
  9. AMLODIPINE [Concomitant]
     Active Substance: AMLODIPINE BESYLATE
  10. FUROSEMIDE. [Concomitant]
     Active Substance: FUROSEMIDE
  11. JAKAFI [Concomitant]
     Active Substance: RUXOLITINIB
  12. LACTULOSE. [Concomitant]
     Active Substance: LACTULOSE
  13. ONDANSETRON [Concomitant]
     Active Substance: ONDANSETRON
  14. SMZ/TMP DS [Concomitant]
     Active Substance: SULFAMETHOXAZOLE\TRIMETHOPRIM
  15. URSODIOL. [Concomitant]
     Active Substance: URSODIOL
  16. BUDESONIDE. [Concomitant]
     Active Substance: BUDESONIDE
  17. VALACYCLOVIR [Concomitant]
     Active Substance: VALACYCLOVIR HYDROCHLORIDE
  18. BOSULIF [Suspect]
     Active Substance: BOSUTINIB MONOHYDRATE
     Indication: ACUTE LYMPHOCYTIC LEUKAEMIA
     Route: 048
     Dates: start: 20191101, end: 202012
  19. METHYLPRED [Concomitant]
     Active Substance: METHYLPREDNISOLONE

REACTIONS (1)
  - Death [None]

NARRATIVE: CASE EVENT DATE: 202012
